FAERS Safety Report 14497002 (Version 1)
Quarter: 2018Q1

REPORT INFORMATION
  Report Type: Spontaneous
  Country: FR (occurrence: FR)
  Receive Date: 20180207
  Receipt Date: 20180207
  Transmission Date: 20180509
  Serious: Yes (Other)
  Sender: FDA-Public Use
  Company Number: FR-ROCHE-2066646

PATIENT
  Age: 31 Year
  Sex: Female

DRUGS (3)
  1. VECURONIUM [Concomitant]
     Active Substance: VECURONIUM BROMIDE
     Route: 042
  2. THIOPENTONE [Concomitant]
     Active Substance: THIOPENTAL SODIUM
     Route: 042
  3. VALIUM [Suspect]
     Active Substance: DIAZEPAM
     Indication: RESTLESSNESS
     Route: 042

REACTIONS (1)
  - Arterial spasm [Unknown]
